FAERS Safety Report 11329405 (Version 2)
Quarter: 2015Q3

REPORT INFORMATION
  Report Type: Report from Study
  Country: US (occurrence: US)
  Receive Date: 20150803
  Receipt Date: 20150910
  Transmission Date: 20151125
  Serious: Yes (Other)
  Sender: FDA-Public Use
  Company Number: US-GILEAD-2015-0165863

PATIENT
  Age: 49 Year
  Sex: Female

DRUGS (1)
  1. AMBRISENTAN [Suspect]
     Active Substance: AMBRISENTAN
     Indication: PULMONARY ARTERIAL HYPERTENSION
     Dosage: 5 MG, UNK
     Route: 065

REACTIONS (9)
  - Hot flush [Unknown]
  - Hyperhidrosis [Unknown]
  - Pallor [Unknown]
  - Dyspnoea [Unknown]
  - Cold sweat [Unknown]
  - Unevaluable event [Unknown]
  - Pulmonary thrombosis [Unknown]
  - Traumatic lung injury [Unknown]
  - Cardiac flutter [Unknown]
